FAERS Safety Report 9949436 (Version 1)
Quarter: 2014Q1

REPORT INFORMATION
  Report Type: Report from Study
  Country: US (occurrence: US)
  Receive Date: 20140304
  Receipt Date: 20140304
  Transmission Date: 20141002
  Serious: No
  Sender: FDA-Public Use
  Company Number: US-ABBVIE-13P-163-1065422-00

PATIENT
  Age: 53 Year
  Sex: Female

DRUGS (5)
  1. HUMIRA [Suspect]
     Indication: ANKYLOSING SPONDYLITIS
     Dates: start: 201211
  2. PREDNISONE [Concomitant]
     Indication: ANKYLOSING SPONDYLITIS
     Dosage: 15 MG DAILY
     Route: 048
  3. CELEBREX [Concomitant]
     Indication: ANKYLOSING SPONDYLITIS
     Route: 048
  4. VICODIN [Concomitant]
     Indication: PAIN
  5. VICODIN [Concomitant]
     Indication: ANKYLOSING SPONDYLITIS

REACTIONS (4)
  - Paraesthesia [Not Recovered/Not Resolved]
  - Asthenia [Unknown]
  - Skin burning sensation [Unknown]
  - Erythema [Unknown]
